FAERS Safety Report 17811264 (Version 1)
Quarter: 2020Q2

REPORT INFORMATION
  Report Type: Spontaneous
  Country: DE (occurrence: DE)
  Receive Date: 20200521
  Receipt Date: 20200521
  Transmission Date: 20200714
  Serious: Yes (Life-Threatening, Other)
  Sender: FDA-Public Use
  Company Number: DE-ASTRAZENECA-2020SE65252

PATIENT
  Age: 31 Year
  Sex: Female

DRUGS (2)
  1. QUETIAPINE IR [Suspect]
     Active Substance: QUETIAPINE
     Dosage: 3.0G ONCE/SINGLE ADMINISTRATION
     Route: 048
  2. QUETIAPINE XR [Suspect]
     Active Substance: QUETIAPINE
     Dosage: 14.0G ONCE/SINGLE ADMINISTRATION
     Route: 048

REACTIONS (4)
  - Intentional overdose [Recovered/Resolved]
  - Suicide attempt [Recovered/Resolved]
  - Bezoar [Recovered/Resolved]
  - Somnolence [Recovered/Resolved]
